FAERS Safety Report 15430968 (Version 1)
Quarter: 2018Q3

REPORT INFORMATION
  Report Type: Spontaneous
  Country: US (occurrence: US)
  Receive Date: 20180926
  Receipt Date: 20180926
  Transmission Date: 20181010
  Serious: No
  Sender: FDA-Public Use
  Company Number: US-INDIVIOR LIMITED-INDV-111300-2018

PATIENT
  Sex: Female

DRUGS (1)
  1. SUBOXONE [Suspect]
     Active Substance: BUPRENORPHINE HYDROCHLORIDE\NALOXONE HYDROCHLORIDE
     Indication: DRUG DEPENDENCE
     Dosage: UNK
     Route: 065
     Dates: start: 2013

REACTIONS (5)
  - Chronic obstructive pulmonary disease [Unknown]
  - Diabetic eye disease [Unknown]
  - Type 2 diabetes mellitus [Unknown]
  - Thirst [Unknown]
  - Lung disorder [Unknown]

NARRATIVE: CASE EVENT DATE: 201805
